FAERS Safety Report 4825242-2 (Version None)
Quarter: 2005Q4

REPORT INFORMATION
  Report Type: 
  Country: None (occurrence: None)
  Receive Date: 20051109
  Receipt Date: 20051028
  Transmission Date: 20060501
  Serious: Yes (Other)
  Sender: FDA-Public Use
  Company Number: 805#1#2005-00100

PATIENT
  Age: 16 Day
  Sex: Male

DRUGS (6)
  1. ALPROSTADIL [Suspect]
     Indication: HEART DISEASE CONGENITAL
     Dosage: RATE OF 15 NG/KG/MIN STARTED 17:30, DISCONTINUED 19:00
     Route: 041
     Dates: start: 20050926, end: 20050926
  2. MIDAZOLAM HCL [Suspect]
     Indication: SEDATION
     Dosage: 0.19 MG/KG/TIME
     Route: 042
     Dates: start: 20050926, end: 20050926
  3. HEPARIN SODIUM               (HEPARIN) [Concomitant]
  4. ALTERNATIVE-DRUG-DIGOXIN [Concomitant]
  5. FUROSEMIDE [Concomitant]
  6. SPIRONOLACTONE [Concomitant]

REACTIONS (9)
  - ACTIVATED PARTIAL THROMBOPLASTIN TIME PROLONGED [None]
  - BASE EXCESS NEGATIVE [None]
  - BLOOD FIBRINOGEN DECREASED [None]
  - CONVULSION NEONATAL [None]
  - HEART RATE INCREASED [None]
  - NEONATAL DISORDER [None]
  - PCO2 DECREASED [None]
  - PO2 DECREASED [None]
  - PROTHROMBIN TIME PROLONGED [None]
